FAERS Safety Report 5362270-5 (Version None)
Quarter: 2007Q2

REPORT INFORMATION
  Report Type: 
  Country: None (occurrence: None)
  Receive Date: 20070619
  Receipt Date: 20070611
  Transmission Date: 20071010
  Serious: Yes (Other)
  Sender: FDA-Public Use
  Company Number: US-SANOFI-SYNTHELABO-A03200703720

PATIENT
  Age: 48 Year
  Sex: Male

DRUGS (5)
  1. AMBIEN [Suspect]
     Indication: INSOMNIA
     Dosage: UNK
     Route: 048
  2. TRAZODONE HCL [Concomitant]
     Dosage: UNK
     Route: 048
  3. TOPAMAX [Concomitant]
     Dosage: UNK
     Route: 048
  4. SEROQUEL [Concomitant]
     Route: 048
  5. LEXAPRO [Concomitant]
     Dosage: UNK
     Route: 048

REACTIONS (2)
  - IMPAIRED DRIVING ABILITY [None]
  - SLEEP WALKING [None]
